FAERS Safety Report 8181160-6 (Version None)
Quarter: 2012Q1

REPORT INFORMATION
  Report Type: 
  Country: None (occurrence: None)
  Receive Date: 20120301
  Receipt Date: 20120301
  Transmission Date: 20120608
  Serious: No
  Sender: FDA-Public Use
  Company Number: None

PATIENT
  Sex: Male
  Weight: 84.1 kg

DRUGS (2)
  1. CARBOCAIN [Suspect]
     Indication: ANAESTHESIA
     Dosage: 1.7 ML ONE TIME ORAL ANESTHESIA VIA INFERIOR ALVEOLAR
     Dates: start: 20120228
  2. SEPTOCAINE [Suspect]
     Indication: ANAESTHESIA
     Dosage: 1.7 ML ONE TIME ORAL ANESTHESIA VIA INFERIOR ALVEOLAR
     Dates: start: 20120228

REACTIONS (3)
  - WRONG DRUG ADMINISTERED [None]
  - CIRCUMSTANCE OR INFORMATION CAPABLE OF LEADING TO MEDICATION ERROR [None]
  - PRODUCT LABEL CONFUSION [None]
